FAERS Safety Report 11387435 (Version 1)
Quarter: 2015Q3

REPORT INFORMATION
  Report Type: Spontaneous
  Country: GB (occurrence: GB)
  Receive Date: 20150817
  Receipt Date: 20150817
  Transmission Date: 20151125
  Serious: Yes (Other)
  Sender: FDA-Public Use
  Company Number: GB-TEVA-585206ACC

PATIENT
  Age: 33 Year
  Sex: Male
  Weight: 100 kg

DRUGS (8)
  1. IVABRADINE [Interacting]
     Active Substance: IVABRADINE
     Indication: LEFT VENTRICULAR DYSFUNCTION
     Dosage: 7.5 MG, BID
     Route: 048
     Dates: start: 20131121
  2. BISOPROLOL FUMARATE. [Concomitant]
     Active Substance: BISOPROLOL FUMARATE
     Indication: LEFT VENTRICULAR DYSFUNCTION
     Dosage: 10 MILLIGRAM DAILY; 5 MG, BID
     Route: 048
     Dates: start: 201310
  3. EPLERENONE. [Concomitant]
     Active Substance: EPLERENONE
     Indication: LEFT VENTRICULAR DYSFUNCTION
     Dosage: 50 MILLIGRAM DAILY; 50 MG, QD
     Route: 048
     Dates: start: 201310
  4. LANSOPRAZOLE. [Concomitant]
     Active Substance: LANSOPRAZOLE
     Indication: GASTROOESOPHAGEAL REFLUX DISEASE
     Dosage: 30 MILLIGRAM DAILY; 30 MG,QD
     Route: 048
     Dates: start: 2013
  5. CLARITHROMYCIN. [Suspect]
     Active Substance: CLARITHROMYCIN
     Indication: LOWER RESPIRATORY TRACT INFECTION
     Dosage: 1000 MILLIGRAM DAILY; 500 MG, BID
     Route: 065
     Dates: start: 20141020, end: 20141024
  6. WARFARIN SODIUM. [Concomitant]
     Active Substance: WARFARIN SODIUM
     Indication: INTRACARDIAC THROMBUS
     Dosage: DAILY AS PER IRN
     Route: 048
     Dates: start: 201310
  7. IVABRADINE [Interacting]
     Active Substance: IVABRADINE
     Indication: OFF LABEL USE
     Route: 065
  8. BUMETANIDE. [Concomitant]
     Active Substance: BUMETANIDE
     Indication: FLUID RETENTION
     Dosage: 2 MILLIGRAM DAILY; 1 MG, BID
     Route: 048
     Dates: start: 201311

REACTIONS (8)
  - Contraindicated drug administered [Recovered/Resolved]
  - Palpitations [Recovered/Resolved]
  - Anxiety [Recovered/Resolved]
  - Drug interaction [Recovered/Resolved]
  - Photopsia [Recovered/Resolved]
  - Electrocardiogram ST-T segment abnormal [Recovered/Resolved]
  - Left ventricular hypertrophy [Recovered/Resolved]
  - Lower respiratory tract infection [Recovered/Resolved]

NARRATIVE: CASE EVENT DATE: 2014
